FAERS Safety Report 19875120 (Version 2)
Quarter: 2021Q4

REPORT INFORMATION
  Report Type: Report from Study
  Country: BE (occurrence: BE)
  Receive Date: 20210923
  Receipt Date: 20211014
  Transmission Date: 20220303
  Serious: Yes (Hospitalization, Other)
  Sender: FDA-Public Use
  Company Number: BE-BAYER-2021-193154

PATIENT
  Age: 27 Year
  Sex: Female

DRUGS (14)
  1. STIVARGA [Suspect]
     Active Substance: REGORAFENIB
     Indication: Colorectal cancer
     Dosage: 120 MG DAILY
     Dates: start: 20210805, end: 20210823
  2. STIVARGA [Suspect]
     Active Substance: REGORAFENIB
     Indication: Colorectal cancer
     Dosage: DAILY DOSE 120 MG
     Dates: start: 20210902, end: 20210909
  3. STIVARGA [Suspect]
     Active Substance: REGORAFENIB
     Indication: Colorectal cancer
     Dosage: 40 MG, BID
     Dates: start: 20210916
  4. MOVICOL [MACROGOL 3350;POTASSIUM CHLORIDE;SODIUM BICARBONATE;SODIU [Concomitant]
     Indication: Constipation
     Dosage: UNK
  5. DESLORATADINE [Concomitant]
     Active Substance: DESLORATADINE
     Indication: Seasonal allergy
     Dosage: UNK
     Dates: end: 20210809
  6. LYNDIOL [ETHINYLESTRADIOL;LYNESTRENOL] [Concomitant]
     Indication: Oral contraception
     Dosage: UNK
  7. PANTOMED [DEXPANTHENOL] [Concomitant]
     Indication: Prophylaxis
     Dosage: 60 MG DAILY
  8. ZOLPIDEM [Concomitant]
     Active Substance: ZOLPIDEM TARTRATE
     Indication: Sleep disorder
     Dosage: 10 MG DAILY
  9. TRAMADOL HYDROCHLORIDE [Concomitant]
     Active Substance: TRAMADOL HYDROCHLORIDE
     Indication: Pain
     Dosage: UNK
     Dates: end: 20210809
  10. LITICAN [ALIZAPRIDE HYDROCHLORIDE] [Concomitant]
     Indication: Nausea
     Dosage: UNK
  11. ASTEMIZOLE [Concomitant]
     Active Substance: ASTEMIZOLE
     Indication: Anxiety
     Dosage: 1 MG, PRN
  12. DAFALGAN [Concomitant]
     Active Substance: ACETAMINOPHEN
     Indication: Pain
     Dosage: 1 G, PRN
  13. ASCORBIC ACID;MACROGOL;POTASSIUM CHLORIDE;SODIUM ASCORBATE;SODIUM [Concomitant]
     Indication: Constipation
     Dosage: UNK
  14. COVID-19 VACCINE [Concomitant]
     Indication: COVID-19
     Dosage: UNK
     Dates: start: 20210830, end: 20210830

REACTIONS (16)
  - Fluid retention [Recovering/Resolving]
  - Gastrointestinal inflammation [Recovered/Resolved]
  - Influenza [Recovered/Resolved]
  - Body temperature increased [Recovering/Resolving]
  - Diarrhoea [Recovered/Resolved]
  - Fatigue [Recovering/Resolving]
  - Ocular icterus [Not Recovered/Not Resolved]
  - Off label use [None]
  - Nausea [Recovered/Resolved]
  - Dry mouth [Recovered/Resolved]
  - Decreased appetite [Recovered/Resolved]
  - Myalgia [Recovered/Resolved]
  - Vomiting [Recovered/Resolved]
  - Back pain [Not Recovered/Not Resolved]
  - Jaundice [None]
  - Constipation [Not Recovered/Not Resolved]

NARRATIVE: CASE EVENT DATE: 20210805
